FAERS Safety Report 16323717 (Version 2)
Quarter: 2019Q2

REPORT INFORMATION
  Report Type: Spontaneous
  Country: JP (occurrence: JP)
  Receive Date: 20190517
  Receipt Date: 20190528
  Transmission Date: 20190711
  Serious: Yes (Death, Life-Threatening, Hospitalization, Disabling, Other)
  Sender: FDA-Public Use
  Company Number: JP-009507513-1904JPN002270J

PATIENT
  Age: 66 Year
  Sex: Male
  Weight: 52 kg

DRUGS (8)
  1. EMEND [Suspect]
     Active Substance: APREPITANT
     Indication: ANTIEMETIC SUPPORTIVE CARE
     Dosage: 125 MILLIGRAM, QD
     Route: 048
     Dates: start: 20190318, end: 20190318
  2. ALOXI [Suspect]
     Active Substance: PALONOSETRON HYDROCHLORIDE
     Indication: ANTIEMETIC SUPPORTIVE CARE
     Dosage: 0.75 MILLIGRAM, QD
     Route: 042
     Dates: start: 20190318, end: 20190318
  3. CARBOPLATIN. [Suspect]
     Active Substance: CARBOPLATIN
     Indication: NON-SMALL CELL LUNG CANCER
     Dosage: 420 MILLIGRAM, Q3W
     Route: 042
     Dates: start: 20190318, end: 20190318
  4. DEXART [Suspect]
     Active Substance: DEXAMETHASONE SODIUM PHOSPHATE
     Indication: ANTIEMETIC SUPPORTIVE CARE
     Dosage: 6.6 MILLIGRAM, QD
     Route: 042
     Dates: start: 20190318, end: 20190318
  5. ABRAXANE [Suspect]
     Active Substance: PACLITAXEL
     Indication: NON-SMALL CELL LUNG CANCER
     Dosage: 150 MILLIGRAM, Q3W
     Route: 042
     Dates: start: 20190318, end: 20190318
  6. KEYTRUDA [Suspect]
     Active Substance: PEMBROLIZUMAB
     Indication: NON-SMALL CELL LUNG CANCER
     Dosage: 200 MILLIGRAM, Q3W
     Route: 041
     Dates: start: 20190318, end: 20190318
  7. FUROSEMIDE. [Suspect]
     Active Substance: FUROSEMIDE
     Indication: POLYURIA
     Dosage: 10 MILLIGRAM, QD
     Route: 042
     Dates: start: 20190318, end: 20190318
  8. EMEND [Suspect]
     Active Substance: APREPITANT
     Dosage: 80 MILLIGRAM, QD
     Route: 048
     Dates: start: 20190319, end: 20190320

REACTIONS (2)
  - Pneumonia [Fatal]
  - Acute kidney injury [Recovered/Resolved]

NARRATIVE: CASE EVENT DATE: 20190324
